FAERS Safety Report 7508092-8 (Version None)
Quarter: 2011Q2

REPORT INFORMATION
  Report Type: 
  Country: None (occurrence: None)
  Receive Date: 20110527
  Receipt Date: 20101227
  Transmission Date: 20111010
  Serious: Yes (Hospitalization, Other)
  Sender: FDA-Public Use
  Company Number: US-BAYER-201022314NA

PATIENT
  Age: 30 Year
  Sex: Female
  Weight: 84 kg

DRUGS (19)
  1. YAZ [Suspect]
     Indication: CONTRACEPTION
     Dosage: UNK UNK, QD
     Route: 048
     Dates: start: 20080301, end: 20080501
  2. YAZ [Suspect]
     Indication: ACNE
  3. ABILIFY [Concomitant]
     Indication: DEPRESSION
     Dates: start: 20060101, end: 20080615
  4. LOVENOX [Concomitant]
  5. YAZ [Suspect]
     Indication: PREMENSTRUAL SYNDROME
  6. ATIVAN [Concomitant]
     Indication: CONVULSION
     Dates: start: 20080201
  7. VITAMIN K TAB [Concomitant]
     Route: 048
  8. DEPO-PROVERA [Concomitant]
  9. TRAZODONE HCL [Concomitant]
  10. VITAMIN K TAB [Concomitant]
     Dosage: 10 MG, UNK
     Dates: start: 20080801
  11. PROZAC [Concomitant]
     Dosage: 20 MG (DAILY DOSE), , ORAL
     Route: 048
  12. ABILIFY [Concomitant]
     Dosage: 10 MG, UNK
  13. EFFEXOR [Concomitant]
     Indication: DEPRESSION
     Dosage: 75 MG, UNK
     Dates: start: 20060101, end: 20080615
  14. CIPROFLOXACIN [Concomitant]
     Dates: start: 20080601
  15. FLAGYL [Concomitant]
     Dates: start: 20080101
  16. LOVENOX [Concomitant]
     Indication: DEEP VEIN THROMBOSIS
     Dates: start: 20080501, end: 20080702
  17. SEROQUEL [Concomitant]
     Dosage: 7.600 MG, ONCE
     Dates: start: 20080801
  18. ATIVAN [Concomitant]
     Dates: start: 20080701
  19. OXYCONTIN [Concomitant]
     Dosage: 20-40 MG PER DAY

REACTIONS (17)
  - OEDEMA PERIPHERAL [None]
  - DYSPNOEA [None]
  - GROIN PAIN [None]
  - HYPOAESTHESIA [None]
  - PARAESTHESIA [None]
  - PULMONARY EMBOLISM [None]
  - PAIN IN EXTREMITY [None]
  - COUGH [None]
  - ASTHENIA [None]
  - MUSCLE STRAIN [None]
  - DEEP VEIN THROMBOSIS [None]
  - ABDOMINAL PAIN [None]
  - CHEST PAIN [None]
  - INFLAMMATION [None]
  - CONTUSION [None]
  - THROMBOSIS [None]
  - TENDERNESS [None]
